FAERS Safety Report 5803822-5 (Version None)
Quarter: 2008Q3

REPORT INFORMATION
  Report Type: 
  Country: None (occurrence: None)
  Receive Date: 20080708
  Receipt Date: 20080701
  Transmission Date: 20090109
  Serious: Yes (Hospitalization)
  Sender: FDA-Public Use
  Company Number: US-BOEHRINGER INGELHEIM GMBH, GERMANY-2008-BP-10295BP

PATIENT
  Sex: Male

DRUGS (6)
  1. FLOMAX [Suspect]
     Indication: BENIGN PROSTATIC HYPERPLASIA
     Route: 048
     Dates: start: 20060101
  2. DIOVAN [Concomitant]
  3. ACTONEL [Concomitant]
  4. TOPROL-XL [Concomitant]
  5. ULTRAM [Concomitant]
  6. NEXIUM [Concomitant]

REACTIONS (1)
  - HIP FRACTURE [None]
